FAERS Safety Report 10150923 (Version 1)
Quarter: 2014Q2

REPORT INFORMATION
  Report Type: Report from Study
  Country: AR (occurrence: AR)
  Receive Date: 20140502
  Receipt Date: 20140502
  Transmission Date: 20141212
  Serious: Yes (Death)
  Sender: FDA-Public Use
  Company Number: PHHY2014AR053085

PATIENT
  Sex: Male

DRUGS (2)
  1. LUCENTIS [Suspect]
     Route: 031
  2. DIOVAN [Suspect]
     Dosage: 80 MG, UNK
     Route: 048

REACTIONS (1)
  - Myocardial infarction [Fatal]
